FAERS Safety Report 25292047 (Version 1)
Quarter: 2025Q2

REPORT INFORMATION
  Report Type: Spontaneous
  Country: US (occurrence: US)
  Receive Date: 20250510
  Receipt Date: 20250510
  Transmission Date: 20250717
  Serious: No
  Sender: SANOFI AVENTIS
  Company Number: US-SA-2025SA120474

PATIENT
  Sex: Female
  Weight: 86.36 kg

DRUGS (1)
  1. DUPIXENT [Suspect]
     Active Substance: DUPILUMAB
     Dosage: INJECT THE CONTENTS OF 1 PEN (300 MG) UNDER THE SKINEVERY 2 WEEKS
     Route: 058

REACTIONS (2)
  - Dry skin [Unknown]
  - Pruritus [Unknown]
